FAERS Safety Report 13933098 (Version 3)
Quarter: 2018Q3

REPORT INFORMATION
  Report Type: Report from Study
  Country: None (occurrence: CA)
  Receive Date: 20170904
  Receipt Date: 20180809
  Transmission Date: 20181010
  Serious: Yes (Hospitalization, Other)
  Sender: FDA-Public Use
  Company Number: CA-ABBVIE-17K-028-2090620-00

PATIENT
  Sex: Female
  Weight: 67 kg

DRUGS (2)
  1. HUMIRA [Suspect]
     Active Substance: ADALIMUMAB
     Dosage: DOSE CHANGED
     Route: 058
  2. HUMIRA [Suspect]
     Active Substance: ADALIMUMAB
     Indication: CROHN^S DISEASE
     Route: 058
     Dates: start: 20170427

REACTIONS (5)
  - Colonic abscess [Unknown]
  - Pneumaturia [Not Recovered/Not Resolved]
  - Diverticulum intestinal [Unknown]
  - Crohn^s disease [Not Recovered/Not Resolved]
  - Enterovesical fistula [Unknown]

NARRATIVE: CASE EVENT DATE: 2017
